FAERS Safety Report 9565562 (Version 2)
Quarter: 2013Q4

REPORT INFORMATION
  Report Type: Report from Study
  Country: ES (occurrence: ES)
  Receive Date: 20130930
  Receipt Date: 20131001
  Transmission Date: 20140711
  Serious: Yes (Other)
  Sender: FDA-Public Use
  Company Number: ES-PFIZER INC-2013277333

PATIENT
  Age: 83 Year
  Sex: Male

DRUGS (6)
  1. AMLODIPINE BESILATE [Suspect]
     Dosage: 5 MG, 1X/DAY
     Route: 048
     Dates: end: 20100909
  2. CARDURAN NEO [Interacting]
     Dosage: UNK
     Route: 048
     Dates: end: 20100909
  3. TORASEMIDE [Interacting]
     Dosage: 5 MG, 1X/DAY
     Route: 048
     Dates: end: 20100909
  4. ENALAPRIL MALEATE [Interacting]
     Indication: HYPERTENSION
     Dosage: 5 MG, 1X/DAY
     Route: 048
     Dates: end: 20100909
  5. LANSOPRAZOLE [Concomitant]
     Dosage: UNK
     Route: 048
     Dates: end: 20100909
  6. CASODEX [Concomitant]
     Dosage: UNK
     Route: 048
     Dates: end: 20100909

REACTIONS (2)
  - Renal failure acute [Recovered/Resolved]
  - Drug interaction [Recovered/Resolved]
